FAERS Safety Report 4985354-X (Version None)
Quarter: 2006Q1

REPORT INFORMATION
  Report Type: 
  Country: None (occurrence: None)
  Receive Date: 20060306
  Receipt Date: 20050429
  Transmission Date: 20060701
  Serious: Yes (Other)
  Sender: FDA-Public Use
  Company Number: 403626

PATIENT
  Age: 19 Year
  Sex: Male
  Weight: 79.4 kg

DRUGS (2)
  1. ACCUTANE [Suspect]
     Indication: ACNE CYSTIC
     Dosage: 40 MG DAILY ORAL
     Route: 048
     Dates: start: 20040112, end: 20040630
  2. ALBUTEROL SULFATE AUTOHALER [Concomitant]

REACTIONS (25)
  - ADJUSTMENT DISORDER [None]
  - ADJUSTMENT DISORDER WITH MIXED DISTURBANCE OF EMOTION AND CONDUCT [None]
  - AMNESIA [None]
  - ASTHENIA [None]
  - BLISTER [None]
  - BODY TEMPERATURE INCREASED [None]
  - DEPRESSION [None]
  - DIARRHOEA [None]
  - DRY EYE [None]
  - DRY SKIN [None]
  - EPISTAXIS [None]
  - FATIGUE [None]
  - FLAT AFFECT [None]
  - HEADACHE [None]
  - HYPERSOMNIA [None]
  - IMPRISONMENT [None]
  - INSOMNIA [None]
  - LIP DRY [None]
  - MALAISE [None]
  - MENTAL IMPAIRMENT [None]
  - PHARYNGOLARYNGEAL PAIN [None]
  - POOR QUALITY SLEEP [None]
  - SKIN DISCOLOURATION [None]
  - SKIN EXFOLIATION [None]
  - SLEEP DISORDER [None]
